FAERS Safety Report 9178959 (Version 1)
Quarter: 2012Q4

REPORT INFORMATION
  Report Type: 
  Country: US (occurrence: US)
  Receive Date: 20121029
  Receipt Date: 20121029
  Transmission Date: 20130627
  Serious: No
  Sender: FDA-Public Use
  Company Number: US-AMGEN-USASP2012053958

PATIENT
  Sex: Female

DRUGS (4)
  1. ENBREL [Suspect]
     Indication: PRODUCT USED FOR UNKNOWN INDICATION
     Dosage: 50 mg, qwk
     Route: 058
  2. IBUPROFEN [Concomitant]
     Dosage: UNK
  3. CALCIUM +VIT D [Concomitant]
     Dosage: 600 UNK, UNK
  4. PRESERVISION AREDS [Concomitant]
     Dosage: 2 UNK, UNK

REACTIONS (1)
  - Nasopharyngitis [Unknown]
